FAERS Safety Report 6491810-8 (Version None)
Quarter: 2009Q4

REPORT INFORMATION
  Report Type: 
  Country: None (occurrence: None)
  Receive Date: 20091210
  Receipt Date: 20091202
  Transmission Date: 20100525
  Serious: Yes (Hospitalization, Other)
  Sender: FDA-Public Use
  Company Number: FLUOROURACIL-NOV-01

PATIENT
  Age: 63 Year
  Sex: Male

DRUGS (11)
  1. FLUOROURACIL [Suspect]
     Indication: PANCREATIC CARCINOMA
  2. CAPECITABINE [Suspect]
     Indication: PANCREATIC CARCINOMA
  3. ASPIRIN [Concomitant]
  4. COLCHICINE [Concomitant]
  5. AMLODIPINE [Concomitant]
  6. ISOSORBIDE MONONITRATE [Concomitant]
  7. CLOPIDOGREL [Concomitant]
  8. METOPROLOL TARTRATE [Concomitant]
  9. SUBLINGUAL NITROGLYCERINE [Concomitant]
  10. OXYCODONE [Concomitant]
  11. DOCUSATE [Concomitant]

REACTIONS (5)
  - LEFT ATRIAL DILATATION [None]
  - MYOCARDIAL ISCHAEMIA [None]
  - PULMONARY VALVE INCOMPETENCE [None]
  - PYREXIA [None]
  - THROMBOCYTOPENIA [None]
